FAERS Safety Report 19483713 (Version 1)
Quarter: 2021Q3

REPORT INFORMATION
  Report Type: Other
  Country: US (occurrence: US)
  Receive Date: 20210701
  Receipt Date: 20210701
  Transmission Date: 20211014
  Serious: No
  Sender: FDA-Public Use
  Company Number: US-ROCHE-2729946

PATIENT
  Age: 74 Year
  Sex: Male

DRUGS (11)
  1. HALOPERIDOL. [Concomitant]
     Active Substance: HALOPERIDOL
  2. LORAZEPAM. [Concomitant]
     Active Substance: LORAZEPAM
     Indication: CATATONIA
     Route: 042
  3. VENLAFAXINE [Concomitant]
     Active Substance: VENLAFAXINE HYDROCHLORIDE
  4. LORAZEPAM. [Concomitant]
     Active Substance: LORAZEPAM
     Route: 042
  5. CLONAZEPAM. [Suspect]
     Active Substance: CLONAZEPAM
     Indication: CATATONIA
     Route: 065
  6. LORAZEPAM. [Concomitant]
     Active Substance: LORAZEPAM
     Dosage: CROSS?TAPERED THE LORAZEPAM TO A DOSE OF 2 MG BID
     Route: 042
  7. AMANTADINE. [Concomitant]
     Active Substance: AMANTADINE HYDROCHLORIDE
     Route: 065
  8. LORAZEPAM. [Concomitant]
     Active Substance: LORAZEPAM
     Route: 042
  9. QUETIAPINE. [Concomitant]
     Active Substance: QUETIAPINE
  10. AMANTADINE. [Concomitant]
     Active Substance: AMANTADINE HYDROCHLORIDE
     Route: 065
  11. ZOLPIDEM [Concomitant]
     Active Substance: ZOLPIDEM TARTRATE

REACTIONS (1)
  - Ataxia [Unknown]
